FAERS Safety Report 9777366 (Version 2)
Quarter: 2014Q1

REPORT INFORMATION
  Report Type: Report from Study
  Country: CA (occurrence: CA)
  Receive Date: 20131221
  Receipt Date: 20140102
  Transmission Date: 20141002
  Serious: No
  Sender: FDA-Public Use
  Company Number: CA-US-EMD SERONO, INC.-7258364

PATIENT
  Age: 34 Year
  Sex: Female

DRUGS (2)
  1. REBIF [Suspect]
     Indication: RELAPSING-REMITTING MULTIPLE SCLEROSIS
     Route: 058
     Dates: start: 20131113
  2. REBIF [Suspect]
     Route: 058
     Dates: start: 20131211

REACTIONS (4)
  - Bronchitis [Recovering/Resolving]
  - Hot flush [Not Recovered/Not Resolved]
  - Malaise [Unknown]
  - Influenza like illness [Not Recovered/Not Resolved]
